FAERS Safety Report 14617443 (Version 2)
Quarter: 2023Q4

REPORT INFORMATION
  Report Type: Report from Study
  Country: DE (occurrence: DE)
  Receive Date: 20180309
  Receipt Date: 20231019
  Transmission Date: 20240110
  Serious: Yes (Other)
  Sender: FDA-Public Use
  Company Number: DE-PFIZER INC-2018099837

PATIENT
  Age: 78 Year
  Sex: Male
  Weight: 64 kg

DRUGS (8)
  1. RAMIPRIL [Suspect]
     Active Substance: RAMIPRIL
     Indication: Hypertension
     Dosage: 150 MG
     Route: 048
  2. AVASTIN [Suspect]
     Active Substance: BEVACIZUMAB
     Indication: Colon cancer metastatic
     Dosage: UNK (IV NOS)
     Route: 042
  3. AVASTIN [Suspect]
     Active Substance: BEVACIZUMAB
     Dosage: UNK (IV NOS)
     Route: 042
     Dates: start: 20090428, end: 20090428
  4. AVASTIN [Suspect]
     Active Substance: BEVACIZUMAB
     Dosage: 487.5 MG, CYCLIC (PATIENT RECEIVED A TOTAL OF 3 APPLICATIONS, ON DAY 1 OF A CYCLE RESPECTIVLY)
     Route: 042
  5. XELODA [Suspect]
     Active Substance: CAPECITABINE
     Indication: Colon cancer metastatic
     Dosage: 2000 MG/M2
     Route: 048
  6. SIMVASTATIN [Suspect]
     Active Substance: SIMVASTATIN
     Indication: Colon cancer metastatic
     Dosage: 487.5 MG (IV NOS)
     Route: 042
     Dates: start: 20190428, end: 20190428
  7. ALIZAPRIDE HYDROCHLORIDE [Concomitant]
     Active Substance: ALIZAPRIDE HYDROCHLORIDE
     Indication: Prophylaxis
     Dosage: UNK
  8. ASPIRIN [Concomitant]
     Active Substance: ASPIRIN
     Dosage: UNK

REACTIONS (3)
  - Nephrotic syndrome [Not Recovered/Not Resolved]
  - Renal impairment [Unknown]
  - Proteinuria [Unknown]

NARRATIVE: CASE EVENT DATE: 20090519
